FAERS Safety Report 4346899-9 (Version None)
Quarter: 2004Q1

REPORT INFORMATION
  Report Type: 
  Country: None (occurrence: None)
  Receive Date: 20040329
  Receipt Date: 20031222
  Transmission Date: 20041129
  Serious: No
  Sender: FDA-Public Use
  Company Number: USA031255274

PATIENT
  Age: 6 Year
  Sex: Male
  Weight: 27 kg

DRUGS (4)
  1. STRATTERA [Suspect]
     Indication: ATTENTION DEFICIT/HYPERACTIVITY DISORDER
     Dosage: 25 MG/IN THE MORNING
     Dates: start: 20031101
  2. STRATTERA [Suspect]
     Indication: PERVASIVE DEVELOPMENTAL DISORDER
     Dosage: 25 MG/IN THE MORNING
     Dates: start: 20031101
  3. RITALIN [Concomitant]
  4. AUGMENTIN [Concomitant]

REACTIONS (5)
  - ABDOMINAL PAIN UPPER [None]
  - MUSCLE CRAMP [None]
  - PNEUMONIA [None]
  - PSYCHOMOTOR HYPERACTIVITY [None]
  - SOMNOLENCE [None]
